FAERS Safety Report 4791906-2 (Version None)
Quarter: 2005Q4

REPORT INFORMATION
  Report Type: 
  Country: None (occurrence: None)
  Receive Date: 20051005
  Receipt Date: 20050818
  Transmission Date: 20060501
  Serious: Yes (Other)
  Sender: FDA-Public Use
  Company Number: 23100230

PATIENT
  Age: 73 Year
  Sex: Female

DRUGS (8)
  1. NOVASTAN [Suspect]
     Indication: CEREBRAL INFARCTION
     Dosage: 60 MG QD IV
     Route: 042
     Dates: start: 20050701, end: 20050702
  2. NOVASTAN [Suspect]
     Indication: CEREBRAL INFARCTION
     Dosage: 10 MG BID IV
     Route: 042
     Dates: start: 20050704, end: 20050707
  3. RADICUT (EDARAVONE) [Suspect]
     Indication: CEREBRAL INFARCTION
     Dosage: 30 MG BID IV
     Route: 042
     Dates: start: 20050701, end: 20050711
  4. GASTER [Concomitant]
  5. ASPIRIN [Concomitant]
  6. SIMVASTATIN [Concomitant]
  7. FAMOTIDINE [Concomitant]
  8. SOLITA T [Concomitant]

REACTIONS (4)
  - BLOOD POTASSIUM INCREASED [None]
  - BLOOD SODIUM DECREASED [None]
  - HYPERKALAEMIA [None]
  - RENAL IMPAIRMENT [None]
